FAERS Safety Report 11738745 (Version 1)
Quarter: 2015Q4

REPORT INFORMATION
  Report Type: Spontaneous
  Country: GB (occurrence: GB)
  Receive Date: 20151113
  Receipt Date: 20151113
  Transmission Date: 20160304
  Serious: Yes (Other)
  Sender: FDA-Public Use
  Company Number: GB-BAYER-2015-460238

PATIENT
  Sex: Male

DRUGS (3)
  1. CIPROFLOXACIN MONOHYDROCHLORIDE [Suspect]
     Active Substance: CIPROFLOXACIN
     Dosage: UNK
     Route: 065
  2. VANCOMYCIN [Suspect]
     Active Substance: VANCOMYCIN
     Dosage: UNK
     Route: 065
  3. PENICILLIN NOS [Suspect]
     Active Substance: PENICILLIN
     Dosage: UNK
     Route: 065

REACTIONS (4)
  - Acute generalised exanthematous pustulosis [Unknown]
  - Drug reaction with eosinophilia and systemic symptoms [Unknown]
  - Red man syndrome [Unknown]
  - Pruritus [Unknown]
